FAERS Safety Report 10300773 (Version 2)
Quarter: 2014Q3

REPORT INFORMATION
  Report Type: Report from Study
  Country: DE (occurrence: DE)
  Receive Date: 20140714
  Receipt Date: 20140805
  Transmission Date: 20150326
  Serious: No
  Sender: FDA-Public Use
  Company Number: DE-BEH-2014043675

PATIENT
  Age: 43 Year
  Sex: Female
  Weight: 61.5 kg

DRUGS (6)
  1. PRIVIGEN [Suspect]
     Active Substance: HUMAN IMMUNOGLOBULIN G
     Dosage: INFUSION RATE MIN. 30 ML/H, MAX. 240 ML/H
     Route: 042
     Dates: start: 20140402, end: 20140402
  2. PRIVIGEN [Suspect]
     Active Substance: HUMAN IMMUNOGLOBULIN G
     Dosage: INFUSION RATE MIN. 15 ML/H, MAX. 200 ML/H
     Route: 042
     Dates: start: 20140401, end: 20140401
  3. PRIVIGEN [Suspect]
     Active Substance: HUMAN IMMUNOGLOBULIN G
     Dosage: INFUSION RATE MIN. 30 ML/H, MAX. 240 ML/H
     Route: 042
     Dates: start: 20140402, end: 20140402
  4. PRIVIGEN [Suspect]
     Active Substance: HUMAN IMMUNOGLOBULIN G
     Indication: APLASTIC ANAEMIA
     Dosage: INFUSION RATE MIN. 15 ML/H, MAX. 100 ML/H
     Route: 042
     Dates: start: 20140331, end: 20140331
  5. PRIVIGEN [Suspect]
     Active Substance: HUMAN IMMUNOGLOBULIN G
     Dosage: INFUSION RATE MIN. 15 ML/H, MAX. 200 ML/H
     Route: 042
     Dates: start: 20140401, end: 20140401
  6. PRIVIGEN [Suspect]
     Active Substance: HUMAN IMMUNOGLOBULIN G
     Dosage: INFUSION RATE MIN. 15 ML/H, MAX. 100 ML/H
     Route: 042
     Dates: start: 20140331, end: 20140331

REACTIONS (2)
  - Dizziness [Recovered/Resolved]
  - Nausea [Recovered/Resolved]

NARRATIVE: CASE EVENT DATE: 20140402
